FAERS Safety Report 23713303 (Version 1)
Quarter: 2024Q2

REPORT INFORMATION
  Report Type: Spontaneous
  Country: US (occurrence: US)
  Receive Date: 20240405
  Receipt Date: 20240405
  Transmission Date: 20240715
  Serious: Yes (Hospitalization)
  Sender: FDA-Public Use
  Company Number: US-JNJFOC-20240373293

PATIENT
  Sex: Female

DRUGS (1)
  1. TALQUETAMAB [Suspect]
     Active Substance: TALQUETAMAB
     Indication: Product used for unknown indication
     Route: 065

REACTIONS (22)
  - Pyrexia [Recovered/Resolved]
  - Red blood cell count decreased [Unknown]
  - Platelet count decreased [Recovered/Resolved]
  - Ageusia [Not Recovered/Not Resolved]
  - Dysphagia [Unknown]
  - Decreased immune responsiveness [Unknown]
  - Back pain [Not Recovered/Not Resolved]
  - Onychalgia [Unknown]
  - Onychomadesis [Unknown]
  - Hypoaesthesia oral [Unknown]
  - Decreased appetite [Unknown]
  - Weight decreased [Unknown]
  - Mastication disorder [Unknown]
  - Dry skin [Not Recovered/Not Resolved]
  - Nail discolouration [Unknown]
  - Nail ridging [Unknown]
  - Onycholysis [Unknown]
  - Rash pustular [Unknown]
  - Fatigue [Not Recovered/Not Resolved]
  - Sensitive skin [Unknown]
  - Skin erosion [Unknown]
  - Skin exfoliation [Unknown]
